FAERS Safety Report 24144598 (Version 1)
Quarter: 2024Q3

REPORT INFORMATION
  Report Type: Other
  Country: CN (occurrence: CN)
  Receive Date: 20240728
  Receipt Date: 20240728
  Transmission Date: 20241016
  Serious: Yes (Hospitalization)
  Sender: JIANGSU HENGRUI MEDICINE
  Company Number: CN-Jiangsu Hengrui Medicine Co., Ltd.-2159693

PATIENT
  Age: 68 Year
  Sex: Female
  Weight: 55 kg

DRUGS (2)
  1. DOCETAXEL [Suspect]
     Active Substance: DOCETAXEL\DOCETAXEL ANHYDROUS
     Indication: Breast cancer
     Route: 041
     Dates: start: 20240717, end: 20240717
  2. CYCLOPHOSPHAMIDE [Suspect]
     Active Substance: CYCLOPHOSPHAMIDE
     Route: 041
     Dates: start: 20240717, end: 20240717

REACTIONS (1)
  - Eosinophil count decreased [Unknown]

NARRATIVE: CASE EVENT DATE: 20240719
